FAERS Safety Report 16368266 (Version 1)
Quarter: 2019Q2

REPORT INFORMATION
  Report Type: Spontaneous
  Country: US (occurrence: US)
  Receive Date: 20190425
  Receipt Date: 20190425
  Transmission Date: 20190711
  Serious: No
  Sender: FDA-Public Use
  Company Number: None

PATIENT
  Age: 65 Year
  Sex: Female

DRUGS (1)
  1. EPCLUSA [Suspect]
     Active Substance: SOFOSBUVIR\VELPATASVIR
     Indication: HEPATITIS C
     Dates: start: 201903

REACTIONS (4)
  - Heat exhaustion [None]
  - Product dose omission [None]
  - Dizziness [None]
  - Constipation [None]

NARRATIVE: CASE EVENT DATE: 20190408
